FAERS Safety Report 4578608-2 (Version None)
Quarter: 2005Q1

REPORT INFORMATION
  Report Type: 
  Country: None (occurrence: None)
  Receive Date: 20050211
  Receipt Date: 20050201
  Transmission Date: 20050727
  Serious: Yes (Hospitalization)
  Sender: FDA-Public Use
  Company Number: GB-MERCK-0502GBR00026

PATIENT
  Age: 64 Year
  Sex: Male
  Weight: 75 kg

DRUGS (9)
  1. ZOCOR [Suspect]
     Indication: BLOOD CHOLESTEROL INCREASED
     Route: 048
     Dates: start: 20041001, end: 20050102
  2. CYCLOSPORINE [Suspect]
     Indication: HEART TRANSPLANT
     Route: 048
     Dates: start: 19960101
  3. CYCLOSPORINE [Suspect]
     Route: 048
     Dates: start: 19960101
  4. PERINDOPRIL [Concomitant]
     Route: 065
  5. DIHYDROCODEINE BITARTRATE AND ACETAMINOPHEN [Concomitant]
     Route: 065
  6. PREDNISOLONE [Concomitant]
     Indication: IMMUNOSUPPRESSION
     Route: 065
  7. OMEPRAZOLE [Concomitant]
     Route: 048
  8. ALLOPURINOL [Concomitant]
     Indication: GOUT
     Route: 065
  9. AMILORIDE HYDROCHLORIDE AND FUROSEMIDE [Concomitant]
     Indication: POLYURIA
     Route: 048

REACTIONS (3)
  - DRUG INTERACTION [None]
  - LOWER RESPIRATORY TRACT INFECTION [None]
  - RHABDOMYOLYSIS [None]
